FAERS Safety Report 4520366-1 (Version None)
Quarter: 2004Q4

REPORT INFORMATION
  Report Type: 
  Country: None (occurrence: None)
  Receive Date: 20041203
  Receipt Date: 20041119
  Transmission Date: 20050328
  Serious: Yes (Disabling)
  Sender: FDA-Public Use
  Company Number: 2004RL000136

PATIENT
  Age: 72 Year
  Sex: Male

DRUGS (5)
  1. RYTHMOL (PROPAFENONE) HYDROCHLORIDE) (150 MG) [Suspect]
     Indication: ATRIAL FIBRILLATION
     Dosage: 450 MG; QD; PO
     Route: 048
     Dates: start: 20041106, end: 20041113
  2. AMIODARONE HCL [Concomitant]
  3. HYDROCHLORIDE [Concomitant]
  4. .. [Concomitant]
  5. .. [Concomitant]

REACTIONS (12)
  - AMNESIA [None]
  - ATAXIA [None]
  - ATRIAL FIBRILLATION [None]
  - BLINDNESS [None]
  - CONFUSIONAL STATE [None]
  - DEAFNESS [None]
  - FALL [None]
  - HEMIPARESIS [None]
  - IMPAIRED SELF-CARE [None]
  - TREATMENT NONCOMPLIANCE [None]
  - VERTIGO [None]
  - VOMITING [None]
